FAERS Safety Report 5579279-9 (Version None)
Quarter: 2008Q1

REPORT INFORMATION
  Report Type: 
  Country: None (occurrence: None)
  Receive Date: 20080102
  Receipt Date: 20071226
  Transmission Date: 20080703
  Serious: Yes (Hospitalization, Other)
  Sender: FDA-Public Use
  Company Number: JP-MERCK-0712USA07234

PATIENT
  Age: 74 Year
  Sex: Female

DRUGS (5)
  1. FOSAMAX [Suspect]
     Indication: OSTEOPOROSIS
     Route: 048
     Dates: start: 20070123, end: 20071126
  2. MUCOSTA [Concomitant]
     Route: 048
     Dates: start: 20060401
  3. SEFRATASE [Concomitant]
     Route: 048
  4. ZALTOPROFEN [Concomitant]
     Route: 048
     Dates: start: 20060401
  5. ONEALFA [Concomitant]
     Route: 048
     Dates: start: 20060401

REACTIONS (8)
  - BREATH ODOUR [None]
  - CELLULITIS [None]
  - HYPOAESTHESIA ORAL [None]
  - IMPAIRED HEALING [None]
  - LOOSE TOOTH [None]
  - OSTEOMYELITIS [None]
  - OSTEONECROSIS [None]
  - TOOTH INFECTION [None]
